FAERS Safety Report 6681092-6 (Version None)
Quarter: 2010Q2

REPORT INFORMATION
  Report Type: 
  Country: None (occurrence: None)
  Receive Date: 20100414
  Receipt Date: 20100408
  Transmission Date: 20101027
  Serious: Yes (Death)
  Sender: FDA-Public Use
  Company Number: JP-ROCHE-684003

PATIENT
  Sex: Male
  Weight: 56 kg

DRUGS (8)
  1. MYCOPHENOLATE MOFETIL [Suspect]
     Indication: PROPHYLAXIS AGAINST TRANSPLANT REJECTION
     Dosage: DOSE DECREASED
     Route: 048
     Dates: start: 20060901, end: 20081120
  2. MYCOPHENOLATE MOFETIL [Suspect]
     Dosage: DISCONTINUED
     Route: 048
     Dates: start: 20081121, end: 20091208
  3. NEORAL [Concomitant]
     Route: 048
     Dates: start: 20050514, end: 20090917
  4. PROGRAF [Concomitant]
     Route: 048
     Dates: start: 20090918, end: 20091208
  5. SOLU-MEDROL [Concomitant]
     Dosage: ROUTE:INTRAVENOUS (NOT OTHERWISE SPECIFIED). SOLU_MEDROL(METHYLPREDNISOLONE SODIUM SUCCINATE)
     Route: 042
     Dates: start: 20050514, end: 20050517
  6. MEDROL [Concomitant]
     Route: 048
     Dates: start: 20050514, end: 20070514
  7. MIYA BM [Concomitant]
     Dosage: DRUG:MIYA BM(MIYA-BM FINE GRANULES)
     Route: 048
     Dates: start: 20081120, end: 20091208
  8. MONILAC [Concomitant]
     Route: 048
     Dates: start: 20091013, end: 20091208

REACTIONS (1)
  - BILE DUCT CANCER [None]
